FAERS Safety Report 13838321 (Version 1)
Quarter: 2017Q3

REPORT INFORMATION
  Report Type: Spontaneous
  Country: US (occurrence: US)
  Receive Date: 20170807
  Receipt Date: 20170807
  Transmission Date: 20171127
  Serious: Yes (Hospitalization, Other)
  Sender: FDA-Public Use
  Company Number: US-APOTEX-2017AP016150

PATIENT
  Age: 76 Year
  Sex: Male

DRUGS (2)
  1. ACETYLSALICYLIC ACID [Concomitant]
     Active Substance: ASPIRIN
     Indication: ANTIPLATELET THERAPY
     Dosage: UNK
     Route: 065
  2. CLOPIDOGREL [Suspect]
     Active Substance: CLOPIDOGREL BISULFATE
     Indication: ANTIPLATELET THERAPY
     Dosage: UNK
     Route: 065

REACTIONS (6)
  - Acute myocardial infarction [Recovering/Resolving]
  - Ventricular tachycardia [Recovered/Resolved]
  - Sinus bradycardia [Recovered/Resolved]
  - Drug resistance [Unknown]
  - Coronary artery occlusion [Recovering/Resolving]
  - Vascular stent thrombosis [Recovering/Resolving]
